FAERS Safety Report 5003015-8 (Version None)
Quarter: 2006Q2

REPORT INFORMATION
  Report Type: 
  Country: None (occurrence: None)
  Receive Date: 20060516
  Receipt Date: 20060117
  Transmission Date: 20061013
  Serious: Yes (Hospitalization)
  Sender: FDA-Public Use
  Company Number: US-MERCK-0601USA02160

PATIENT
  Age: 58 Year
  Sex: Female
  Weight: 82 kg

DRUGS (14)
  1. VIOXX [Suspect]
     Indication: OSTEOARTHRITIS
     Route: 048
     Dates: start: 20011101, end: 20011115
  2. VIOXX [Suspect]
     Route: 048
     Dates: start: 20040617, end: 20040708
  3. VIOXX [Suspect]
     Route: 048
     Dates: start: 20040714, end: 20040929
  4. VIOXX [Suspect]
     Indication: FIBROMYALGIA
     Route: 048
     Dates: start: 20011101, end: 20011115
  5. VIOXX [Suspect]
     Route: 048
     Dates: start: 20040617, end: 20040708
  6. VIOXX [Suspect]
     Route: 048
     Dates: start: 20040714, end: 20040929
  7. LORCET-HD [Concomitant]
     Route: 065
  8. ATIVAN [Concomitant]
     Route: 065
  9. NEURONTIN [Concomitant]
     Route: 065
  10. LEXAPRO [Concomitant]
     Route: 065
  11. AMBIEN [Concomitant]
     Route: 065
  12. LEVAQUIN [Concomitant]
     Route: 065
  13. DIFLUCAN [Concomitant]
     Route: 065
  14. HYDROCODONE BITARTRATE [Concomitant]
     Route: 065

REACTIONS (25)
  - ANXIETY DISORDER [None]
  - APPENDIX DISORDER [None]
  - ASTHMA [None]
  - ATELECTASIS [None]
  - BACK PAIN [None]
  - CEREBROVASCULAR ACCIDENT [None]
  - CLOSTRIDIUM DIFFICILE COLITIS [None]
  - CONSTIPATION [None]
  - DEPRESSION [None]
  - DERMATITIS [None]
  - DIASTOLIC DYSFUNCTION [None]
  - DRUG DEPENDENCE [None]
  - FACIAL PAIN [None]
  - FALL [None]
  - HEADACHE [None]
  - HYPERTENSION [None]
  - INTERVERTEBRAL DISC DEGENERATION [None]
  - IRRITABLE BOWEL SYNDROME [None]
  - MITRAL VALVE PROLAPSE [None]
  - PAIN [None]
  - PNEUMONIA [None]
  - PRODUCTIVE COUGH [None]
  - SEDATION [None]
  - SINUS HEADACHE [None]
  - SINUSITIS [None]
